FAERS Safety Report 8347324-3 (Version None)
Quarter: 2012Q2

REPORT INFORMATION
  Report Type: 
  Country: None (occurrence: None)
  Receive Date: 20120509
  Receipt Date: 20120425
  Transmission Date: 20120825
  Serious: Yes (Life-Threatening, Hospitalization, Disabling)
  Sender: FDA-Public Use
  Company Number: FI-ROCHE-1052473

PATIENT
  Sex: Female
  Weight: 80 kg

DRUGS (3)
  1. XELODA [Suspect]
     Indication: BREAST CANCER
     Route: 048
     Dates: start: 20120131, end: 20120209
  2. DOCETAXEL [Concomitant]
     Indication: BREAST CANCER
     Route: 042
     Dates: start: 20120131, end: 20120131
  3. INSULIN [Concomitant]
     Indication: TYPE 2 DIABETES MELLITUS

REACTIONS (8)
  - GASTROINTESTINAL MUCOSAL EXFOLIATION [None]
  - ENCEPHALOPATHY [None]
  - NEUTROPENIC SEPSIS [None]
  - ENTEROBACTER SEPSIS [None]
  - PYREXIA [None]
  - THROMBOCYTOPENIA [None]
  - DIARRHOEA [None]
  - KETOACIDOSIS [None]
